FAERS Safety Report 18333306 (Version 1)
Quarter: 2020Q4

REPORT INFORMATION
  Report Type: Spontaneous
  Country: DE (occurrence: DE)
  Receive Date: 20201001
  Receipt Date: 20201001
  Transmission Date: 20210113
  Serious: Yes (Hospitalization)
  Sender: FDA-Public Use
  Company Number: DE-TEVA-2020-DE-1832260

PATIENT
  Age: 85 Year
  Sex: Female
  Weight: 75.6 kg

DRUGS (8)
  1. ADENURIC 80MG [Suspect]
     Active Substance: FEBUXOSTAT
     Dosage: 80 MILLIGRAM DAILY; 0-0-0-1
     Route: 048
  2. ACETYLSALICYLSAURE [Concomitant]
     Active Substance: ASPIRIN
     Dosage: 100 MILLIGRAM DAILY; 0-1-0-0
     Route: 048
  3. METOPROLOL. [Suspect]
     Active Substance: METOPROLOL
     Dosage: 95 MILLIGRAM DAILY; 1-0-1-0
     Route: 048
  4. WOBENZYM [Concomitant]
     Dosage: 6 DOSAGE FORMS DAILY; NK MG, 2-2-2-0
     Route: 048
  5. METAMIZOL [Suspect]
     Active Substance: METAMIZOLE SODIUM
     Dosage: 500 MG,IF NECESSARY
     Route: 048
  6. TORASEMID [Suspect]
     Active Substance: TORSEMIDE
     Dosage: 5 MILLIGRAM DAILY;  0-1-0-0
     Route: 048
  7. SELENASE 300 RP [Concomitant]
     Dosage: 300 MILLIGRAM DAILY;  1-0-0-0
     Route: 048
  8. COLECALCIFEROL (VITAMIN D) [Concomitant]
     Dosage: 2000 IU (INTERNATIONAL UNIT) DAILY;  0-1-0-0
     Route: 048

REACTIONS (2)
  - Fall [Unknown]
  - Syncope [Unknown]
